FAERS Safety Report 7398786-X (Version None)
Quarter: 2011Q2

REPORT INFORMATION
  Report Type: 
  Country: None (occurrence: None)
  Receive Date: 20110401
  Receipt Date: 20110401
  Transmission Date: 20111010
  Serious: Yes (Other)
  Sender: FDA-Public Use
  Company Number: None

PATIENT
  Sex: Female

DRUGS (1)
  1. ANASTROZOLE [Suspect]
     Indication: BREAST CANCER
     Dosage: 1 TABLET ONCE DAILY PO
     Route: 048
     Dates: start: 20100920, end: 20101123

REACTIONS (2)
  - PRODUCT SUBSTITUTION ISSUE [None]
  - ALOPECIA [None]
